FAERS Safety Report 5240030-3 (Version None)
Quarter: 2007Q1

REPORT INFORMATION
  Report Type: 
  Country: None (occurrence: None)
  Receive Date: 20070216
  Receipt Date: 20070208
  Transmission Date: 20070707
  Serious: Yes (Congenital Anomaly)
  Sender: FDA-Public Use
  Company Number: GB-ABBOTT-07P-167-0358725-00

PATIENT
  Sex: Female
  Weight: 26 kg

DRUGS (2)
  1. VALPROATE SODIUM [Suspect]
     Indication: DRUG EXPOSURE DURING PREGNANCY
  2. CARBAMAZEPINE [Concomitant]
     Indication: DRUG EXPOSURE DURING PREGNANCY
     Dosage: UNKNOWN

REACTIONS (20)
  - ASTIGMATISM [None]
  - BODY DYSMORPHIC DISORDER [None]
  - CHEILITIS [None]
  - CONGENITAL EYE DISORDER [None]
  - COORDINATION ABNORMAL [None]
  - CROUP INFECTIOUS [None]
  - DISTURBANCE IN ATTENTION [None]
  - DYSMORPHISM [None]
  - FEEDING DISORDER OF INFANCY OR EARLY CHILDHOOD [None]
  - FOETAL ANTICONVULSANT SYNDROME [None]
  - HEAD DEFORMITY [None]
  - HYPERACUSIS [None]
  - HYPERMETROPIA [None]
  - LEARNING DISORDER [None]
  - LIP DISORDER [None]
  - OBSESSIVE-COMPULSIVE DISORDER [None]
  - RESTLESSNESS [None]
  - SLEEP DISORDER [None]
  - SPEECH DISORDER DEVELOPMENTAL [None]
  - TONGUE GEOGRAPHIC [None]
